FAERS Safety Report 21414842 (Version 1)
Quarter: 2022Q4

REPORT INFORMATION
  Report Type: Spontaneous
  Country: US (occurrence: US)
  Receive Date: 20221006
  Receipt Date: 20221006
  Transmission Date: 20230113
  Serious: No
  Sender: FDA-Public Use
  Company Number: US-ALLERGAN-2231035US

PATIENT
  Sex: Female

DRUGS (2)
  1. QULIPTA [Suspect]
     Active Substance: ATOGEPANT
     Indication: Product used for unknown indication
     Dosage: 30 MG
  2. QULIPTA [Suspect]
     Active Substance: ATOGEPANT
     Dosage: 60 MG

REACTIONS (2)
  - Bronchitis [Recovering/Resolving]
  - Nausea [Recovering/Resolving]
